FAERS Safety Report 5015392-2 (Version None)
Quarter: 2006Q2

REPORT INFORMATION
  Report Type: 
  Country: None (occurrence: None)
  Receive Date: 20060530
  Receipt Date: 20060530
  Transmission Date: 20061013
  Serious: Yes (Life-Threatening, Hospitalization, Other)
  Sender: FDA-Public Use
  Company Number: None

PATIENT
  Age: 43 Year
  Sex: Female
  Weight: 99.7913 kg

DRUGS (4)
  1. GEODON [Suspect]
     Indication: ANXIETY
     Dosage: 20MG QD PO
     Route: 048
     Dates: start: 20051020, end: 20051217
  2. GEODON [Suspect]
     Indication: BIPOLAR DISORDER
     Dosage: 20MG QD PO
     Route: 048
     Dates: start: 20051020, end: 20051217
  3. GEODON [Suspect]
     Indication: ANXIETY
     Dosage: 20MG QD PO
     Route: 048
     Dates: start: 20060503, end: 20060528
  4. GEODON [Suspect]
     Indication: BIPOLAR DISORDER
     Dosage: 20MG QD PO
     Route: 048
     Dates: start: 20060503, end: 20060528

REACTIONS (16)
  - ABDOMINAL PAIN [None]
  - ABDOMINAL PAIN LOWER [None]
  - ANAEMIA [None]
  - ASTHENIA [None]
  - BLOOD AMYLASE DECREASED [None]
  - BLOOD PRESSURE INCREASED [None]
  - FATIGUE [None]
  - FEAR [None]
  - HYPOALBUMINAEMIA [None]
  - HYPONATRAEMIA [None]
  - IMPAIRED WORK ABILITY [None]
  - MIGRAINE [None]
  - NAUSEA [None]
  - NEUTROPHIL COUNT INCREASED [None]
  - PROTEIN TOTAL DECREASED [None]
  - VISION BLURRED [None]
